FAERS Safety Report 23792194 (Version 1)
Quarter: 2024Q2

REPORT INFORMATION
  Report Type: Spontaneous
  Country: US (occurrence: US)
  Receive Date: 20240429
  Receipt Date: 20240429
  Transmission Date: 20240715
  Serious: No
  Sender: FDA-Public Use
  Company Number: US-HALEON-USCH2024015459

PATIENT
  Age: 69 Year

DRUGS (1)
  1. FLONASE HEADACHE AND ALLERGY RELIEF [Suspect]
     Active Substance: ACETAMINOPHEN\CHLORPHENIRAMINE MALEATE\PHENYLEPHRINE HYDROCHLORIDE
     Indication: Product used for unknown indication
     Dosage: UNK ;EXPDATE:20250331

REACTIONS (2)
  - Drug ineffective [Unknown]
  - Product complaint [Unknown]
